FAERS Safety Report 13238575 (Version 1)
Quarter: 2017Q1

REPORT INFORMATION
  Report Type: Spontaneous
  Country: US (occurrence: US)
  Receive Date: 20170216
  Receipt Date: 20170216
  Transmission Date: 20170428
  Serious: No
  Sender: FDA-Public Use
  Company Number: US-ACTAVIS-2016-05353

PATIENT
  Age: 44 Year
  Sex: Female

DRUGS (12)
  1. MORPHINE SULFATE (AELLC) [Suspect]
     Active Substance: MORPHINE SULFATE
     Indication: PAIN IN EXTREMITY
  2. ABILIFY [Concomitant]
     Active Substance: ARIPIPRAZOLE
  3. CETIRIZINE [Concomitant]
     Active Substance: CETIRIZINE HYDROCHLORIDE
  4. MORPHINE SULFATE (AELLC) [Suspect]
     Active Substance: MORPHINE SULFATE
     Indication: BACK PAIN
     Dosage: 90 MG, DAILY
     Route: 048
  5. TRUVADA [Concomitant]
     Active Substance: EMTRICITABINE\TENOFOVIR DISOPROXIL FUMARATE
     Indication: HIV INFECTION
  6. LINZESS [Concomitant]
     Active Substance: LINACLOTIDE
  7. AMOXICILLIN AND CLAVULANATE POTASSIUM [Suspect]
     Active Substance: AMOXICILLIN\CLAVULANATE POTASSIUM
     Indication: EAR INFECTION
     Dosage: UNK, QAM/QPM
     Route: 048
     Dates: start: 20160303
  8. DIOVAN [Suspect]
     Active Substance: VALSARTAN
     Indication: BLOOD PRESSURE DIASTOLIC INCREASED
     Dosage: 60 MG, BID
     Route: 048
  9. TIZANIDINE. [Concomitant]
     Active Substance: TIZANIDINE
  10. AMITRIPTYLINE [Concomitant]
     Active Substance: AMITRIPTYLINE
     Indication: PRODUCT USED FOR UNKNOWN INDICATION
  11. VALTREX [Concomitant]
     Active Substance: VALACYCLOVIR HYDROCHLORIDE
     Indication: HERPES VIRUS INFECTION
  12. HYDROCODONE [Concomitant]
     Active Substance: HYDROCODONE
     Indication: BREAKTHROUGH PAIN

REACTIONS (8)
  - Drug ineffective [Not Recovered/Not Resolved]
  - Muscle spasms [Not Recovered/Not Resolved]
  - Malaise [Not Recovered/Not Resolved]
  - Withdrawal syndrome [Not Recovered/Not Resolved]
  - Nausea [Not Recovered/Not Resolved]
  - Rhinorrhoea [Not Recovered/Not Resolved]
  - Diarrhoea [Not Recovered/Not Resolved]
  - Drug dose omission [Recovered/Resolved]

NARRATIVE: CASE EVENT DATE: 20160305
